FAERS Safety Report 6371667-6 (Version None)
Quarter: 2009Q3

REPORT INFORMATION
  Report Type: 
  Country: None (occurrence: None)
  Receive Date: 20090918
  Receipt Date: 20090902
  Transmission Date: 20100115
  Serious: Yes (Other)
  Sender: FDA-Public Use
  Company Number: 8051868

PATIENT
  Age: 71 Year
  Sex: Male
  Weight: 68 kg

DRUGS (4)
  1. CETIRIZINE HCL [Suspect]
     Dosage: 5 MG /D PO
     Route: 048
     Dates: start: 20081023
  2. LEVOCETIRIZINE DIHYDROCHLORIDE [Suspect]
     Indication: RHINITIS
     Dosage: 5 MG 1/D PO
     Route: 048
     Dates: start: 20090212
  3. VALSARTAN [Concomitant]
  4. NASONEX [Concomitant]

REACTIONS (1)
  - VISUAL FIELD DEFECT [None]
